FAERS Safety Report 6377322-0 (Version None)
Quarter: 2009Q3

REPORT INFORMATION
  Report Type: 
  Country: None (occurrence: None)
  Receive Date: 20090923
  Receipt Date: 20090923
  Transmission Date: 20100115
  Serious: No
  Sender: FDA-Public Use
  Company Number: None

PATIENT
  Age: 53 Year
  Sex: Male
  Weight: 99.5 kg

DRUGS (4)
  1. WARFARIN [Suspect]
     Indication: THROMBOSIS PROPHYLAXIS
     Dosage: 5MG PO QD
     Route: 048
  2. LEXAPRO [Concomitant]
  3. ZITHROMAX [Concomitant]
  4. THALIDOMIDE [Concomitant]

REACTIONS (7)
  - CHILLS [None]
  - DYSPNOEA EXERTIONAL [None]
  - EPISTAXIS [None]
  - HAEMOGLOBIN DECREASED [None]
  - HYPOPHAGIA [None]
  - INTERNATIONAL NORMALISED RATIO INCREASED [None]
  - PYREXIA [None]
